FAERS Safety Report 22134508 (Version 4)
Quarter: 2023Q4

REPORT INFORMATION
  Report Type: Report from Study
  Country: US (occurrence: US)
  Receive Date: 20230324
  Receipt Date: 20231215
  Transmission Date: 20240110
  Serious: Yes (Life-Threatening, Hospitalization, Other)
  Sender: FDA-Public Use
  Company Number: US-JNJFOC-20230339380

PATIENT
  Age: 53 Year
  Sex: Female
  Weight: 71.7 kg

DRUGS (24)
  1. SELEXIPAG [Suspect]
     Active Substance: SELEXIPAG
     Indication: Pulmonary arterial hypertension
     Route: 048
     Dates: start: 20230127
  2. SELEXIPAG [Suspect]
     Active Substance: SELEXIPAG
     Route: 048
     Dates: start: 202302, end: 20230403
  3. SELEXIPAG [Suspect]
     Active Substance: SELEXIPAG
     Dosage: 200MCG IN THE AM AND 400MCG IN THE PM
     Route: 048
  4. TYVASO DPI [Suspect]
     Active Substance: TREPROSTINIL
     Indication: Pulmonary arterial hypertension
     Route: 055
     Dates: start: 20230925
  5. TYVASO DPI [Suspect]
     Active Substance: TREPROSTINIL
     Route: 055
     Dates: start: 2023, end: 2023
  6. TYVASO DPI [Suspect]
     Active Substance: TREPROSTINIL
     Route: 055
     Dates: start: 2023
  7. LASIX [Suspect]
     Active Substance: FUROSEMIDE
     Indication: Product used for unknown indication
     Route: 065
  8. ACETAZOLAMIDE [Concomitant]
     Active Substance: ACETAZOLAMIDE
  9. RANOLAZINE [Concomitant]
     Active Substance: RANOLAZINE
  10. LETAIRIS [Concomitant]
     Active Substance: AMBRISENTAN
  11. METFORMIN [Concomitant]
     Active Substance: METFORMIN HYDROCHLORIDE
  12. ROPINIROLE HYDROCHLORIDE [Concomitant]
     Active Substance: ROPINIROLE HYDROCHLORIDE
  13. TRAZODONE HCL [Concomitant]
     Active Substance: TRAZODONE HYDROCHLORIDE
  14. METOPROLOL TARTRATE [Concomitant]
     Active Substance: METOPROLOL TARTRATE
  15. DULOXETINE HYDROCHLORIDE [Concomitant]
     Active Substance: DULOXETINE HYDROCHLORIDE
  16. BUSPIRONE HCL [Concomitant]
     Active Substance: BUSPIRONE HYDROCHLORIDE
  17. SPIRONOLACTONE [Concomitant]
     Active Substance: SPIRONOLACTONE
  18. ADCIRCA [Concomitant]
     Active Substance: TADALAFIL
  19. TRELEGY ELLIPTA [Concomitant]
     Active Substance: FLUTICASONE FUROATE\UMECLIDINIUM BROMIDE\VILANTEROL TRIFENATATE
  20. OXYGEN [Concomitant]
     Active Substance: OXYGEN
  21. TYLENOL EXTRA STRENGTH [Concomitant]
     Active Substance: ACETAMINOPHEN
  22. LEVOTHYROXINE SODIUM [Concomitant]
     Active Substance: LEVOTHYROXINE SODIUM
  23. ELIQUIS [Concomitant]
     Active Substance: APIXABAN
  24. METOLAZONE [Concomitant]
     Active Substance: METOLAZONE

REACTIONS (35)
  - Cardiac arrest [Unknown]
  - Neuropathy peripheral [Unknown]
  - Loss of consciousness [Not Recovered/Not Resolved]
  - Swelling [Unknown]
  - Oedema peripheral [Not Recovered/Not Resolved]
  - Abdominal distension [Unknown]
  - Rhonchi [Unknown]
  - Wheezing [Unknown]
  - Fall [Recovering/Resolving]
  - Productive cough [Not Recovered/Not Resolved]
  - Vomiting [Unknown]
  - Blood pressure decreased [Unknown]
  - Pain in extremity [Unknown]
  - Myalgia [Not Recovered/Not Resolved]
  - Arthralgia [Not Recovered/Not Resolved]
  - Therapy non-responder [Unknown]
  - Pain [Unknown]
  - Feeling abnormal [Unknown]
  - Fatigue [Unknown]
  - Feeling cold [Unknown]
  - Weight increased [Unknown]
  - Contusion [Recovering/Resolving]
  - Oral herpes [Unknown]
  - Hunger [Unknown]
  - Erythema [Unknown]
  - Fluid retention [Unknown]
  - Pruritus [Unknown]
  - Heart rate irregular [Unknown]
  - Seasonal allergy [Unknown]
  - Hypoaesthesia [Unknown]
  - Condition aggravated [Unknown]
  - Respiratory tract congestion [Unknown]
  - Skin burning sensation [Unknown]
  - Dry skin [Unknown]
  - Erythema [Unknown]

NARRATIVE: CASE EVENT DATE: 20230101
